FAERS Safety Report 8191104-9 (Version None)
Quarter: 2012Q1

REPORT INFORMATION
  Report Type: 
  Country: None (occurrence: None)
  Receive Date: 20120307
  Receipt Date: 20120228
  Transmission Date: 20120608
  Serious: Yes (Other)
  Sender: FDA-Public Use
  Company Number: US-GLAXOSMITHKLINE-A0967865A

PATIENT
  Age: 57 Year
  Sex: Male

DRUGS (5)
  1. ACARBOSE [Concomitant]
  2. HYDROCHLOROTHIAZIDE [Concomitant]
  3. GLIPIZIDE [Concomitant]
  4. GLUCOPHAGE [Concomitant]
  5. AVANDIA [Suspect]
     Indication: TYPE 2 DIABETES MELLITUS
     Dosage: 4MG VARIABLE DOSE
     Route: 048

REACTIONS (3)
  - CARDIAC DISORDER [None]
  - ANGINA PECTORIS [None]
  - PALPITATIONS [None]
